FAERS Safety Report 4549352-2 (Version None)
Quarter: 2005Q1

REPORT INFORMATION
  Report Type: 
  Country: None (occurrence: None)
  Receive Date: 20050110
  Receipt Date: 20050110
  Transmission Date: 20050727
  Serious: Yes (Other)
  Sender: FDA-Public Use
  Company Number: None

PATIENT
  Age: 55 Year
  Sex: Female
  Weight: 158.759 kg

DRUGS (3)
  1. CORRECTOL [Suspect]
     Indication: CONSTIPATION
     Dosage: ORAL
     Route: 048
  2. FEEN-A-MINT NO DOSE FORM [Suspect]
     Indication: CONSTIPATION
  3. EX-LAX [Concomitant]

REACTIONS (2)
  - DRUG DEPENDENCE [None]
  - GASTROINTESTINAL DISORDER [None]
